FAERS Safety Report 5306033-5 (Version None)
Quarter: 2007Q3

REPORT INFORMATION
  Report Type: 
  Country: None (occurrence: None)
  Receive Date: 20070424
  Receipt Date: 20070412
  Transmission Date: 20080115
  Serious: Yes (Hospitalization)
  Sender: FDA-Public Use
  Company Number: FR-ROCHE-493211

PATIENT
  Age: 20 Year
  Sex: Female

DRUGS (13)
  1. CELLCEPT [Suspect]
     Indication: NEPHROTIC SYNDROME
     Route: 048
     Dates: start: 20060915
  2. PROPOFAN [Suspect]
     Indication: DRUG USE FOR UNKNOWN INDICATION
     Route: 048
  3. AVLOCARDYL L.P. [Concomitant]
  4. CETIRIZINE HCL [Concomitant]
  5. LEVOTHYROXINE SODIUM [Concomitant]
  6. SINGULAIR [Concomitant]
  7. CYCLEANE [Concomitant]
  8. ERCEFURYL [Concomitant]
     Dates: start: 20070107
  9. GELUPRANE [Concomitant]
     Dates: start: 20070107
  10. TIORFAN [Concomitant]
     Dates: start: 20070107
  11. SPASFON [Concomitant]
     Dates: start: 20070107
  12. LOPERAMIDE HCL [Concomitant]
     Dates: start: 20070107
  13. NUREFLEX [Concomitant]
     Dates: start: 20070107, end: 20070107

REACTIONS (8)
  - AGRANULOCYTOSIS [None]
  - ANURIA [None]
  - ASPARTATE AMINOTRANSFERASE INCREASED [None]
  - DIARRHOEA [None]
  - DRUG HYPERSENSITIVITY [None]
  - HISTIOCYTOSIS HAEMATOPHAGIC [None]
  - PYREXIA [None]
  - VOMITING [None]
